FAERS Safety Report 8622777-1 (Version None)
Quarter: 2012Q3

REPORT INFORMATION
  Report Type: 
  Country: None (occurrence: None)
  Receive Date: 20120827
  Receipt Date: 20120822
  Transmission Date: 20120928
  Serious: No
  Sender: FDA-Public Use
  Company Number: US-B.I. PHARMACEUTICALS,INC./RIDGEFIELD-2012-BP-20569BP

PATIENT
  Sex: Female
  Weight: 91 kg

DRUGS (4)
  1. ONGLYZA [Concomitant]
     Dosage: 5 MG
     Route: 048
     Dates: start: 20100101
  2. TRADJENTA [Suspect]
     Indication: DIABETES MELLITUS
     Dosage: 5 MG
     Route: 048
     Dates: start: 20120820
  3. GLIPIZIDE [Concomitant]
     Indication: DIABETES MELLITUS
     Dosage: 4 MG
     Route: 048
     Dates: start: 20100101
  4. LIPITOR [Concomitant]
     Indication: BLOOD PRESSURE ABNORMAL
     Dosage: 20 MG
     Route: 048
     Dates: start: 20070101

REACTIONS (1)
  - BLOOD GLUCOSE INCREASED [None]
